FAERS Safety Report 17717731 (Version 1)
Quarter: 2020Q2

REPORT INFORMATION
  Report Type: Spontaneous
  Country: US (occurrence: US)
  Receive Date: 20200427
  Receipt Date: 20200427
  Transmission Date: 20200714
  Serious: Yes (Hospitalization)
  Sender: FDA-Public Use
  Company Number: None

PATIENT
  Age: 77 Year
  Sex: Female
  Weight: 54 kg

DRUGS (7)
  1. VITAMIN D3 [Concomitant]
     Active Substance: CHOLECALCIFEROL
  2. MULTAQ [Concomitant]
     Active Substance: DRONEDARONE
  3. JANTOVEN [Concomitant]
     Active Substance: WARFARIN SODIUM
  4. HYDROCHLOROTHIAZIDE. [Concomitant]
     Active Substance: HYDROCHLOROTHIAZIDE
  5. ZEJULA [Suspect]
     Active Substance: NIRAPARIB
     Indication: MALIGNANT PERITONEAL NEOPLASM
     Dosage: ?          QUANTITY:2 CAPSULE(S);?
     Route: 048
     Dates: start: 20200321, end: 20200405
  6. VITAMIN B12 [Concomitant]
     Active Substance: CYANOCOBALAMIN
  7. METROPROLOL [Concomitant]
     Active Substance: METOPROLOL

REACTIONS (6)
  - White blood cell count decreased [None]
  - Atrial fibrillation [None]
  - Epistaxis [None]
  - Red blood cell count decreased [None]
  - Increased tendency to bruise [None]
  - Platelet count decreased [None]

NARRATIVE: CASE EVENT DATE: 20200404
